FAERS Safety Report 9455460 (Version 1)
Quarter: 2013Q3

REPORT INFORMATION
  Report Type: Report from Study
  Country: BR (occurrence: BR)
  Receive Date: 20130813
  Receipt Date: 20130813
  Transmission Date: 20140515
  Serious: Yes (Death)
  Sender: FDA-Public Use
  Company Number: BR-JNJFOC-20130804549

PATIENT
  Sex: 0

DRUGS (1)
  1. INTELENCE [Suspect]
     Indication: PRODUCT USED FOR UNKNOWN INDICATION
     Route: 048

REACTIONS (3)
  - Acute myocardial infarction [Fatal]
  - Type 2 diabetes mellitus [Fatal]
  - Hypertension [Fatal]
